FAERS Safety Report 4670233-8 (Version None)
Quarter: 2005Q2

REPORT INFORMATION
  Report Type: 
  Country: None (occurrence: None)
  Receive Date: 20050520
  Receipt Date: 20050510
  Transmission Date: 20051028
  Serious: Yes (Other)
  Sender: FDA-Public Use
  Company Number: HQWYE371027APR05

PATIENT
  Age: 40 Year
  Sex: Male
  Weight: 63.56 kg

DRUGS (10)
  1. RAPAMUNE [Suspect]
     Indication: IMMUNOSUPPRESSANT DRUG THERAPY
     Dosage: SEE IMAGE
     Route: 048
     Dates: start: 20050418, end: 20050401
  2. RAPAMUNE [Suspect]
     Indication: PROPHYLAXIS AGAINST TRANSPLANT REJECTION
     Dosage: SEE IMAGE
     Route: 048
     Dates: start: 20050418, end: 20050401
  3. RAPAMUNE [Suspect]
     Indication: IMMUNOSUPPRESSANT DRUG THERAPY
     Dosage: SEE IMAGE
     Route: 048
     Dates: start: 20050401
  4. RAPAMUNE [Suspect]
     Indication: PROPHYLAXIS AGAINST TRANSPLANT REJECTION
     Dosage: SEE IMAGE
     Route: 048
     Dates: start: 20050401
  5. PREDNISONE [Suspect]
     Indication: IMMUNOSUPPRESSANT DRUG THERAPY
     Dosage: 30 MG 1X PER 1 DAY, ORAL
     Route: 048
  6. TACROLIMUS (TACROLIMUS) [Suspect]
     Dosage: ORAL
     Route: 048
  7. CELLCEPT [Concomitant]
  8. ZENAPAX [Concomitant]
  9. INSULIN [Concomitant]
  10. SEPTRA DS (SULFAMETHOXAZOLE/TRIMETHORPIM) [Concomitant]

REACTIONS (7)
  - ACUTE PULMONARY OEDEMA [None]
  - BLOOD CREATINE PHOSPHOKINASE INCREASED [None]
  - BLOOD CREATININE INCREASED [None]
  - INTRACARDIAC THROMBUS [None]
  - MYOCARDIAL INFARCTION [None]
  - OXYGEN SATURATION DECREASED [None]
  - POST PROCEDURAL COMPLICATION [None]
